FAERS Safety Report 21140662 (Version 1)
Quarter: 2022Q3

REPORT INFORMATION
  Report Type: Spontaneous
  Country: CN (occurrence: CN)
  Receive Date: 20220728
  Receipt Date: 20220728
  Transmission Date: 20221027
  Serious: Yes (Other)
  Sender: FDA-Public Use
  Company Number: CN-STRIDES ARCOLAB LIMITED-2022SP009391

PATIENT
  Age: 29 Year
  Sex: Male

DRUGS (16)
  1. DEXAMETHASONE [Suspect]
     Active Substance: DEXAMETHASONE
     Indication: Burkitt^s lymphoma
     Dosage: 5 MILLIGRAM (5 MG OF WAS INJECTED FOUR TIMES)
     Route: 037
     Dates: start: 201905
  2. DEXAMETHASONE [Suspect]
     Active Substance: DEXAMETHASONE
     Dosage: 40 MILLIGRAM/SQ. METER/ DAY (AS A PART OF DA-EPOCH-R REGIMEN (REPEATED EVERY 21 DAYS); 40 MG/D, ON D
     Route: 065
     Dates: start: 201905
  3. DEXAMETHASONE [Suspect]
     Active Substance: DEXAMETHASONE
     Dosage: 40 MILLIGRAM (AFTER DA-EPOCH-R REGIMEN, HE RECEIVED DEXAMETHASONE 40MG DAY 1 AND DAY 4 AS A PART OF
     Route: 065
     Dates: start: 201909
  4. METHOTREXATE [Suspect]
     Active Substance: METHOTREXATE
     Indication: Burkitt^s lymphoma
     Dosage: 10 MILLIGRAM, UNKNOWN
     Route: 065
     Dates: start: 201905
  5. METHOTREXATE [Suspect]
     Active Substance: METHOTREXATE
     Dosage: 4 GRAM (AN EXTRA DOSE)
     Route: 065
     Dates: start: 20191028
  6. RITUXIMAB [Suspect]
     Active Substance: RITUXIMAB
     Indication: Burkitt^s lymphoma
     Dosage: 375 MILLIGRAM/SQ. METER ON DAY 0; PART OF DA-EPOCH-R REGIMEN, WHICH WAS REPEATED EVERY 21 DAYS)
     Route: 065
     Dates: start: 201905
  7. RITUXIMAB [Suspect]
     Active Substance: RITUXIMAB
     Dosage: 375 MILLIGRAM/SQ. METER (ON DAY 1)
     Route: 065
     Dates: start: 201909
  8. ETOPOSIDE [Suspect]
     Active Substance: ETOPOSIDE
     Indication: Burkitt^s lymphoma
     Dosage: 50 MILLIGRAM/SQ. METER/ DAY PART OF DA-EPOCH-R REGIMEN (REPEATED EVERY 21 DAYS); 50 MG/M2/D, D1-D4,
     Route: 065
     Dates: start: 201905
  9. VINCRISTINE [Suspect]
     Active Substance: VINCRISTINE
     Indication: Burkitt^s lymphoma
     Dosage: UNK
     Route: 065
     Dates: start: 201905
  10. VINCRISTINE [Suspect]
     Active Substance: VINCRISTINE
     Dosage: 0.4 MILLIGRAM/SQ. METER/ DAY AS A PART OF DA-EPOCH-R REGIMEN (REPEATED EVERY 21 DAYS); 0.4 MG/M2/DAY
     Route: 065
     Dates: start: 201905
  11. DOXORUBICIN [Suspect]
     Active Substance: DOXORUBICIN
     Indication: Burkitt^s lymphoma
     Dosage: 50 MILLIGRAM/SQ. METER/ DAY (AS A PART OF DA-EPOCH-R REGIMEN (REPEATED EVERY 21 DAYS); 50 MG/M2/D, D
     Route: 065
     Dates: start: 201905
  12. CYCLOPHOSPHAMIDE [Suspect]
     Active Substance: CYCLOPHOSPHAMIDE
     Indication: Burkitt^s lymphoma
     Dosage: 750 MILLIGRAM/SQ. METER (AS A PART OF DA-EPOCH-R REGIMEN (REPEATED EVERY 21 DAYS); 750 MG/M2/DAY ON
     Route: 065
     Dates: start: 201905
  13. EMTRICITABINE\TENOFOVIR [Concomitant]
     Active Substance: EMTRICITABINE\TENOFOVIR
     Indication: Acquired immunodeficiency syndrome
     Dosage: UNK PER DAY
     Route: 048
     Dates: start: 20190522
  14. DOLUTEGRAVIR SODIUM [Concomitant]
     Active Substance: DOLUTEGRAVIR SODIUM
     Indication: Acquired immunodeficiency syndrome
     Dosage: 50 MILLIGRAM/ DAY
     Route: 065
     Dates: start: 20190522
  15. CYTARABINE [Concomitant]
     Active Substance: CYTARABINE
     Indication: Burkitt^s lymphoma
     Dosage: 30 MILLIGRAM, UNKNOWN
     Route: 065
  16. CYTARABINE [Concomitant]
     Active Substance: CYTARABINE
     Dosage: 4 GRAM, UNKNOWN
     Route: 065
     Dates: start: 20191028

REACTIONS (2)
  - Myelosuppression [Unknown]
  - Therapy partial responder [Unknown]
